FAERS Safety Report 13406334 (Version 1)
Quarter: 2017Q2

REPORT INFORMATION
  Report Type: Spontaneous
  Country: US (occurrence: US)
  Receive Date: 20170405
  Receipt Date: 20170405
  Transmission Date: 20170830
  Serious: No
  Sender: FDA-Public Use
  Company Number: US-MISSION PHARMACAL COMPANY-1065035

PATIENT
  Age: 82 Year
  Sex: Male

DRUGS (1)
  1. LITHOSTAT [Suspect]
     Active Substance: ACETOHYDROXAMIC ACID
     Indication: CALCULUS BLADDER
     Route: 065

REACTIONS (2)
  - Rash generalised [Unknown]
  - Oedema peripheral [Unknown]
